FAERS Safety Report 13746403 (Version 1)
Quarter: 2017Q3

REPORT INFORMATION
  Report Type: Report from Study
  Country: None (occurrence: US)
  Receive Date: 20170712
  Receipt Date: 20170712
  Transmission Date: 20171127
  Serious: No
  Sender: FDA-Public Use
  Company Number: US-IPSEN BIOPHARMACEUTICALS, INC.-2013-2874

PATIENT
  Age: 21 Year
  Sex: Female

DRUGS (1)
  1. SOMATULINE DEPOT [Suspect]
     Active Substance: LANREOTIDE ACETATE
     Indication: ACROMEGALY
     Dosage: 90 MG
     Route: 058
     Dates: start: 20130208

REACTIONS (3)
  - Injection site mass [Not Recovered/Not Resolved]
  - Skin disorder [Recovering/Resolving]
  - Injection site pain [None]

NARRATIVE: CASE EVENT DATE: 201307
